FAERS Safety Report 8997453 (Version 2)
Quarter: 2013Q1

REPORT INFORMATION
  Report Type: Report from Study
  Country: BR (occurrence: BR)
  Receive Date: 20130104
  Receipt Date: 20130124
  Transmission Date: 20140127
  Serious: Yes (Hospitalization, Other)
  Sender: FDA-Public Use
  Company Number: BR-GENZYME-POMP-1002703

PATIENT
  Sex: Female

DRUGS (1)
  1. MYOZYME [Suspect]
     Indication: GLYCOGEN STORAGE DISEASE TYPE II
     Dosage: UNK UNK, UNK
     Route: 042
     Dates: start: 20111108

REACTIONS (4)
  - Surgery [Unknown]
  - Post procedural complication [Unknown]
  - Bacteraemia [Unknown]
  - Pyrexia [Unknown]
